FAERS Safety Report 12305585 (Version 3)
Quarter: 2017Q2

REPORT INFORMATION
  Report Type: Report from Study
  Country: US (occurrence: US)
  Receive Date: 20160426
  Receipt Date: 20170608
  Transmission Date: 20170830
  Serious: Yes (Death, Hospitalization, Other)
  Sender: FDA-Public Use
  Company Number: US-ALEXION PHARMACEUTICALS INC-A201602814

PATIENT
  Age: 41 Year
  Sex: Female

DRUGS (10)
  1. SOLIRIS [Suspect]
     Active Substance: ECULIZUMAB
     Dosage: 900 MG, QW
     Route: 042
     Dates: start: 2013
  2. COUMADIN [Concomitant]
     Active Substance: WARFARIN SODIUM
     Indication: ANTIPHOSPHOLIPID SYNDROME
     Route: 065
  3. PREDNISONE. [Concomitant]
     Active Substance: PREDNISONE
     Indication: ANTIPHOSPHOLIPID SYNDROME
     Dosage: 10 MG, UNK
     Route: 065
  4. SOLIRIS [Suspect]
     Active Substance: ECULIZUMAB
     Dosage: 900 MG, QW
     Route: 042
     Dates: start: 201512
  5. SOLIRIS [Suspect]
     Active Substance: ECULIZUMAB
     Indication: ANTIPHOSPHOLIPID SYNDROME
     Dosage: 900 MG, QW
     Route: 042
     Dates: start: 20110702
  6. RITUXAN [Concomitant]
     Active Substance: RITUXIMAB
     Indication: THROMBOCYTOPENIA
  7. SOLIRIS [Suspect]
     Active Substance: ECULIZUMAB
     Dosage: 1200 MG, Q2W
     Route: 042
     Dates: start: 2013
  8. SOLIRIS [Suspect]
     Active Substance: ECULIZUMAB
     Dosage: 1200 MG, Q2W
     Route: 042
     Dates: start: 201501, end: 20160414
  9. RITUXAN [Concomitant]
     Active Substance: RITUXIMAB
     Indication: ANTIPHOSPHOLIPID SYNDROME
     Dosage: UNK, QW
     Route: 065
     Dates: start: 201602
  10. SOLIRIS [Suspect]
     Active Substance: ECULIZUMAB
     Indication: OFF LABEL USE
     Dosage: 1200 MG, Q2W
     Route: 042
     Dates: start: 201108, end: 201309

REACTIONS (30)
  - Subdural haematoma [Recovered/Resolved]
  - Pneumonia mycoplasmal [Recovered/Resolved]
  - Speech disorder [Recovered/Resolved]
  - Neisseria infection [Recovered/Resolved]
  - Peritonitis bacterial [Recovered/Resolved]
  - Confusional state [Recovered/Resolved]
  - Thrombocytopenia [Recovered/Resolved]
  - Staphylococcal infection [Recovered/Resolved]
  - Coagulopathy [Unknown]
  - Fluid overload [Recovered/Resolved]
  - Cerebrovascular accident [Unknown]
  - Staphylococcal infection [Unknown]
  - Staphylococcal infection [Unknown]
  - Device malfunction [Unknown]
  - Off label use [Unknown]
  - Subdural haematoma [Unknown]
  - Blood lactate dehydrogenase increased [Recovering/Resolving]
  - Subdural haematoma [Unknown]
  - Cerebrovascular accident [Recovered/Resolved]
  - Thrombocytopenia [Unknown]
  - Haptoglobin decreased [Recovering/Resolving]
  - Fluid overload [Unknown]
  - Acute respiratory failure [Recovered/Resolved]
  - Livedo reticularis [Recovered/Resolved]
  - Hypogammaglobulinaemia [Not Recovered/Not Resolved]
  - Cerebral infarction [Fatal]
  - Lacunar stroke [Recovered/Resolved]
  - Staphylococcal bacteraemia [Recovered/Resolved]
  - Staphylococcal infection [Recovered/Resolved]
  - Platelet count decreased [Unknown]

NARRATIVE: CASE EVENT DATE: 2013
